FAERS Safety Report 5122670-5 (Version None)
Quarter: 2006Q4

REPORT INFORMATION
  Report Type: 
  Country: None (occurrence: None)
  Receive Date: 20061004
  Receipt Date: 20060921
  Transmission Date: 20070319
  Serious: Yes (Hospitalization, Other)
  Sender: FDA-Public Use
  Company Number: 2003-05-4199

PATIENT
  Age: 13 Year
  Sex: Male
  Weight: 58 kg

DRUGS (2)
  1. CELESTONE [Suspect]
     Indication: RHINITIS ALLERGIC
     Dosage: SEE IMAGE
     Route: 048
     Dates: start: 19991001, end: 20000201
  2. CELESTONE [Suspect]
     Indication: RHINITIS ALLERGIC
     Dosage: SEE IMAGE
     Route: 048
     Dates: start: 20011001, end: 20021220

REACTIONS (6)
  - ADRENAL INSUFFICIENCY [None]
  - BALANCE DISORDER [None]
  - BONE DENSITY DECREASED [None]
  - FAILURE TO THRIVE [None]
  - GROWTH RETARDATION [None]
  - OSTEOPOROSIS [None]
